FAERS Safety Report 23664059 (Version 4)
Quarter: 2024Q2

REPORT INFORMATION
  Report Type: Spontaneous
  Country: US (occurrence: None)
  Receive Date: 20240322
  Receipt Date: 20240426
  Transmission Date: 20240715
  Serious: Yes (Life-Threatening, Hospitalization, Other)
  Sender: FDA-Public Use
  Company Number: 2024A069869

PATIENT
  Sex: Female

DRUGS (2)
  1. DURVALUMAB [Suspect]
     Active Substance: DURVALUMAB
  2. TREMELIMUMAB [Suspect]
     Active Substance: TREMELIMUMAB
     Route: 042

REACTIONS (4)
  - Hallucination [Unknown]
  - Immune-mediated hepatitis [Not Recovered/Not Resolved]
  - Enzyme abnormality [Unknown]
  - Blood bilirubin abnormal [Unknown]
